FAERS Safety Report 24559605 (Version 2)
Quarter: 2025Q1

REPORT INFORMATION
  Report Type: Report from Study
  Country: GB (occurrence: GB)
  Receive Date: 20241029
  Receipt Date: 20250211
  Transmission Date: 20250409
  Serious: Yes (Congenital Anomaly, Other)
  Sender: HETERO
  Company Number: GB-AMAROX PHARMA-AMR2024GB03834

PATIENT
  Sex: Female
  Weight: 2.7 kg

DRUGS (4)
  1. EMTRICITABINE\TENOFOVIR DISOPROXIL [Suspect]
     Active Substance: EMTRICITABINE\TENOFOVIR DISOPROXIL
     Indication: Product used for unknown indication
     Route: 064
     Dates: start: 20240509
  2. DARUNAVIR [Suspect]
     Active Substance: DARUNAVIR
     Indication: Product used for unknown indication
     Route: 064
     Dates: start: 20240509
  3. RITONAVIR [Suspect]
     Active Substance: RITONAVIR
     Indication: Product used for unknown indication
     Route: 064
     Dates: start: 20240509
  4. METRONIDAZOLE [Suspect]
     Active Substance: METRONIDAZOLE
     Indication: Product used for unknown indication
     Route: 064

REACTIONS (2)
  - Microcephaly [Unknown]
  - Foetal exposure during pregnancy [Unknown]
